FAERS Safety Report 12107828 (Version 1)
Quarter: 2016Q1

REPORT INFORMATION
  Report Type: Spontaneous
  Country: US (occurrence: US)
  Receive Date: 20160224
  Receipt Date: 20160224
  Transmission Date: 20160526
  Serious: No
  Sender: FDA-Public Use
  Company Number: US-JNJFOC-20160119883

PATIENT
  Age: 69 Year
  Sex: Male
  Weight: 76.2 kg

DRUGS (1)
  1. INVOKANA [Suspect]
     Active Substance: CANAGLIFLOZIN
     Indication: DIABETES MELLITUS
     Route: 048
     Dates: start: 20160111, end: 20160113

REACTIONS (6)
  - Dysstasia [Unknown]
  - Dizziness [Unknown]
  - Drug ineffective [Unknown]
  - Dysuria [Unknown]
  - Pruritus genital [Unknown]
  - Vomiting [Unknown]

NARRATIVE: CASE EVENT DATE: 201601
